FAERS Safety Report 18689571 (Version 1)
Quarter: 2020Q4

REPORT INFORMATION
  Report Type: Spontaneous
  Country: DE (occurrence: DE)
  Receive Date: 20201231
  Receipt Date: 20201231
  Transmission Date: 20210114
  Serious: Yes (Hospitalization, Other)
  Sender: FDA-Public Use
  Company Number: DE-TEVA-2020-DE-1863676

PATIENT
  Age: 74 Year
  Sex: Male
  Weight: 48 kg

DRUGS (11)
  1. AMBROXOL [Concomitant]
     Active Substance: AMBROXOL
     Dosage: 90 MILLIGRAM DAILY; 1-1-1-0
  2. ULTIBRO BREEZHALER 85MIKROGRAMM/43MIKROGRAMM [Concomitant]
     Dosage: 1 DOSAGE FORMS DAILY; 85|43 UG, 1-0-0-0
  3. MAGNESIUM AAA 500MG [Concomitant]
     Dosage: 500 MILLIGRAM DAILY; 1-0-0-0
  4. RAMIPRIL. [Suspect]
     Active Substance: RAMIPRIL
     Dosage: 10 MILLIGRAM DAILY; 1-0-1-0
  5. DAXAS 500MIKROGRAMM [Concomitant]
     Dosage: 500 MILLIGRAM DAILY; 1-0-0-0
  6. ACETYLSALICYLSAEURE [Suspect]
     Active Substance: ASPIRIN
     Dosage: 100 MILLIGRAM DAILY; 1-0-0-0
  7. SIMVASTATIN. [Concomitant]
     Active Substance: SIMVASTATIN
     Dosage: 40 MILLIGRAM DAILY; 20 MG, 0-0-2-0
  8. TORASEMID [Suspect]
     Active Substance: TORSEMIDE
     Dosage: 10 MILLIGRAM DAILY; 1-0-0-0
  9. INSUMAN COMB [Concomitant]
     Active Substance: INSULIN HUMAN
     Dosage: 30|70 IE, 10-0-5-0
  10. COLECALCIFEROL (VITAMIN D) [Concomitant]
     Active Substance: CHOLECALCIFEROL
     Dosage: 1000 IU (INTERNATIONAL UNIT) DAILY; 1-0-0-0
  11. METOPROLOL. [Concomitant]
     Active Substance: METOPROLOL
     Dosage: 47.5 MILLIGRAM DAILY; 1-0-1-0

REACTIONS (7)
  - Pallor [Unknown]
  - Internal haemorrhage [Unknown]
  - Haematochezia [Unknown]
  - Diarrhoea [Unknown]
  - General physical health deterioration [Unknown]
  - Decreased appetite [Unknown]
  - Condition aggravated [Unknown]

NARRATIVE: CASE EVENT DATE: 202009
